FAERS Safety Report 16012134 (Version 3)
Quarter: 2020Q3

REPORT INFORMATION
  Report Type: Other
  Country: PT (occurrence: PT)
  Receive Date: 20190227
  Receipt Date: 20200906
  Transmission Date: 20201102
  Serious: Yes (Life-Threatening, Hospitalization)
  Sender: FDA-Public Use
  Company Number: PT-ROCHE-2272341

PATIENT
  Age: 62 Year
  Sex: Male

DRUGS (8)
  1. DIAZEPAM. [Suspect]
     Active Substance: DIAZEPAM
     Indication: BEHAVIOUR DISORDER
     Route: 065
  2. CARBAMAZEPINE. [Suspect]
     Active Substance: CARBAMAZEPINE
     Indication: BEHAVIOUR DISORDER
     Route: 065
  3. CARBAMAZEPINE. [Suspect]
     Active Substance: CARBAMAZEPINE
     Indication: ALCOHOLISM
  4. PHENYTOIN SODIUM. [Suspect]
     Active Substance: PHENYTOIN SODIUM
     Indication: BEHAVIOUR DISORDER
  5. TIAPRIDA [Suspect]
     Active Substance: TIAPRIDE
     Indication: BEHAVIOUR DISORDER
  6. TIAPRIDA [Suspect]
     Active Substance: TIAPRIDE
     Indication: ALCOHOLISM
     Dosage: 2 TIMES A DAY
     Route: 065
  7. PHENYTOIN SODIUM. [Suspect]
     Active Substance: PHENYTOIN SODIUM
     Indication: ALCOHOLISM
     Dosage: 2 TIMES A DAY
     Route: 065
  8. DIAZEPAM. [Suspect]
     Active Substance: DIAZEPAM
     Indication: ALCOHOLISM
     Route: 065

REACTIONS (14)
  - Rhabdomyolysis [Recovered/Resolved]
  - Neuroleptic malignant syndrome [Recovered/Resolved]
  - Myoclonus [Recovering/Resolving]
  - Renal disorder [Recovered/Resolved]
  - Altered state of consciousness [Recovering/Resolving]
  - Muscle rigidity [Unknown]
  - Gait disturbance [Unknown]
  - Toxicity to various agents [Unknown]
  - Dyskinesia [Unknown]
  - Leukocytosis [Unknown]
  - Musculoskeletal stiffness [Recovered/Resolved]
  - Dystonia [Unknown]
  - Atrophy [Unknown]
  - Enzyme level increased [Unknown]
